FAERS Safety Report 14332426 (Version 5)
Quarter: 2018Q3

REPORT INFORMATION
  Report Type: Other
  Country: US (occurrence: US)
  Receive Date: 20171228
  Receipt Date: 20180806
  Transmission Date: 20181010
  Serious: Yes (Hospitalization, Other)
  Sender: FDA-Public Use
  Company Number: US-ACORDA-ACO_145171_2017

PATIENT
  Age: 55 Year
  Sex: Female

DRUGS (10)
  1. KEPPRA [Suspect]
     Active Substance: LEVETIRACETAM
     Indication: SEIZURE
     Dosage: UNK
     Route: 065
  2. ESCITALOPRAM OXALATE (LEXAPRO) [Concomitant]
     Indication: DEPRESSION
     Dosage: 20 MG, QD
     Route: 048
  3. MARIJUANA [Concomitant]
     Active Substance: CANNABIS SATIVA SUBSP. INDICA TOP
     Indication: PRODUCT USED FOR UNKNOWN INDICATION
     Dosage: UNK
     Route: 065
  4. AMBIEN [Concomitant]
     Active Substance: ZOLPIDEM TARTRATE
     Indication: PRODUCT USED FOR UNKNOWN INDICATION
     Dosage: 10 MG, HS PRN
     Route: 048
  5. CITALOPRAM [Concomitant]
     Active Substance: CITALOPRAM HYDROBROMIDE
     Indication: DEPRESSION
     Dosage: 40 MG, UNK
     Route: 065
  6. PSYCHIATRIC MEDICATIONS [Suspect]
     Active Substance: UNSPECIFIED INGREDIENT
     Indication: MENTAL DISORDER
     Dosage: UNK
     Route: 065
  7. PYRIDOXINE (VITAMIN B?6) [Concomitant]
     Indication: PRODUCT USED FOR UNKNOWN INDICATION
     Dosage: 50 MG, QD (MAY INCREASE TO BID PRN)
     Route: 048
  8. AMPYRA [Suspect]
     Active Substance: DALFAMPRIDINE
     Indication: MULTIPLE SCLEROSIS
  9. AMPYRA [Suspect]
     Active Substance: DALFAMPRIDINE
     Indication: GAIT DISTURBANCE
     Dosage: 10 MG, BID
     Route: 048
     Dates: end: 20171206
  10. TYSABRI [Concomitant]
     Active Substance: NATALIZUMAB
     Indication: RELAPSING-REMITTING MULTIPLE SCLEROSIS
     Dosage: UNK
     Route: 065

REACTIONS (14)
  - Tongue biting [Recovering/Resolving]
  - Urine analysis abnormal [Recovered/Resolved]
  - Arthralgia [Not Recovered/Not Resolved]
  - Joint injury [Unknown]
  - Back pain [Not Recovered/Not Resolved]
  - Psychotic disorder [Recovered/Resolved]
  - Anger [Recovered/Resolved]
  - Agitation [Recovered/Resolved]
  - Glossodynia [Recovering/Resolving]
  - Limb injury [Unknown]
  - Peroneal nerve palsy [Not Recovered/Not Resolved]
  - Fatigue [Recovering/Resolving]
  - Asthenia [Not Recovered/Not Resolved]
  - Seizure [Recovered/Resolved]

NARRATIVE: CASE EVENT DATE: 20171206
